FAERS Safety Report 8491813-8 (Version None)
Quarter: 2012Q3

REPORT INFORMATION
  Report Type: 
  Country: None (occurrence: None)
  Receive Date: 20120706
  Receipt Date: 20120626
  Transmission Date: 20120928
  Serious: Yes (Other)
  Sender: FDA-Public Use
  Company Number: US-JNJFOC-20120614355

PATIENT
  Age: 84 Year
  Sex: Male
  Weight: 66.23 kg

DRUGS (5)
  1. WARFARIN SODIUM [Suspect]
     Indication: ANTICOAGULANT THERAPY
     Dosage: 2 MG (3 DAYS A WEEK), 2.5MG (4 DAYS A WEEK)
     Route: 065
     Dates: start: 20040101
  2. A MULTIVITAMIN [Concomitant]
     Indication: NUTRITIONAL SUPPORT
     Route: 065
  3. PLAVIX [Concomitant]
     Indication: CARDIAC DISORDER
     Route: 065
     Dates: start: 20060101
  4. PRASTERONE [Concomitant]
     Indication: ASTHENIA
     Dosage: USING SINCE 3 MONTHS
     Route: 065
  5. EXTRA STRENGTH TYLENOL [Suspect]
     Indication: MUSCULOSKELETAL STIFFNESS
     Route: 048
     Dates: start: 20120624, end: 20120625

REACTIONS (1)
  - PENILE HAEMORRHAGE [None]
